FAERS Safety Report 8122562-3 (Version None)
Quarter: 2012Q1

REPORT INFORMATION
  Report Type: 
  Country: None (occurrence: None)
  Receive Date: 20120208
  Receipt Date: 20120206
  Transmission Date: 20120608
  Serious: Yes (Other)
  Sender: FDA-Public Use
  Company Number: US-ROCHE-793703

PATIENT
  Sex: Male
  Weight: 62.652 kg

DRUGS (2)
  1. ACCUTANE [Suspect]
     Indication: ACNE
     Dates: start: 19820101, end: 19830101
  2. ACCUTANE [Suspect]
     Dates: start: 19990805, end: 20000706

REACTIONS (4)
  - IRRITABLE BOWEL SYNDROME [None]
  - INFLAMMATORY BOWEL DISEASE [None]
  - DEPRESSION [None]
  - OESOPHAGEAL DISORDER [None]
